FAERS Safety Report 15065511 (Version 1)
Quarter: 2018Q2

REPORT INFORMATION
  Report Type: Spontaneous
  Country: US (occurrence: US)
  Receive Date: 20180626
  Receipt Date: 20180626
  Transmission Date: 20180711
  Serious: No
  Sender: FDA-Public Use
  Company Number: US-AUROBINDO-AUR-APL-2017-39089

PATIENT

DRUGS (1)
  1. ZOLPIDEM TARTRATE TABLETS 5 MG [Suspect]
     Active Substance: ZOLPIDEM TARTRATE
     Indication: INSOMNIA
     Dosage: 5 MG, UNK
     Route: 065

REACTIONS (4)
  - Product substitution issue [Unknown]
  - Product size issue [Unknown]
  - Product measured potency issue [Unknown]
  - Drug ineffective [Unknown]
